FAERS Safety Report 8012157-4 (Version None)
Quarter: 2011Q4

REPORT INFORMATION
  Report Type: 
  Country: None (occurrence: None)
  Receive Date: 20111228
  Receipt Date: 20111221
  Transmission Date: 20120403
  Serious: Yes (Death)
  Sender: FDA-Public Use
  Company Number: GB-SANOFI-AVENTIS-2011SA083936

PATIENT

DRUGS (6)
  1. DOCETAXEL [Suspect]
     Indication: SQUAMOUS CELL CARCINOMA
     Dosage: 1-H INFUSION ON DAY 1
     Route: 065
  2. CISPLATIN [Suspect]
     Indication: SQUAMOUS CELL CARCINOMA
     Dosage: 4-H INFUSION ON DAY 1
     Route: 065
  3. ALL OTHER THERAPEUTIC PRODUCTS [Concomitant]
     Indication: ANTIEMETIC SUPPORTIVE CARE
  4. FLUOROURACIL [Suspect]
     Indication: SQUAMOUS CELL CARCINOMA
     Dosage: CONTINUOUS 24-H PERIPHERAL INFUSION ON DAYS 2-5
     Route: 065
  5. CIPROFLOXACIN [Concomitant]
     Indication: PROPHYLAXIS
     Route: 048
  6. DEXAMETHASONE [Concomitant]
     Dosage: WAS GIVEN FOR A TOTAL OF 6 DAYS , STARTING THE NIGHT BEFORE CHEMOTHERAPY

REACTIONS (1)
  - GASTROINTESTINAL PERFORATION [None]
